FAERS Safety Report 15981825 (Version 1)
Quarter: 2019Q1

REPORT INFORMATION
  Report Type: Report from Study
  Country: EG (occurrence: EG)
  Receive Date: 20190219
  Receipt Date: 20190219
  Transmission Date: 20190418
  Serious: Yes (Other)
  Sender: FDA-Public Use
  Company Number: EG-ELI_LILLY_AND_COMPANY-EG201902003859

PATIENT
  Age: 76 Year
  Sex: Male

DRUGS (7)
  1. CAL-MAG CALCIUM CARBONATE;MAGNESIUM HYDROXID [Concomitant]
     Indication: MINERAL SUPPLEMENTATION
     Dosage: UNK
  2. TERIPARATIDE [Suspect]
     Active Substance: TERIPARATIDE
     Indication: OSTEOPOROSIS
     Dosage: 20 UG, DAILY
     Route: 058
     Dates: start: 20180920, end: 201901
  3. BON ONE [Concomitant]
     Indication: VITAMIN SUPPLEMENTATION
  4. TRITACE [Concomitant]
     Active Substance: RAMIPRIL
     Indication: CARDIAC DISORDER
     Dosage: UNK
  5. ESMOPUMP [Concomitant]
     Indication: ABDOMINAL DISCOMFORT
     Dosage: UNK
  6. STIMULAN [Concomitant]
     Indication: CEREBRAL DISORDER
     Dosage: UNK
  7. SOLUPRED METHYLPREDNISOLONE SODIUM SUCCINATE [Concomitant]
     Indication: RHEUMATOID ARTHRITIS
     Dosage: UNK

REACTIONS (3)
  - Gait inability [Not Recovered/Not Resolved]
  - Neuralgia [Not Recovered/Not Resolved]
  - Pain in extremity [Not Recovered/Not Resolved]

NARRATIVE: CASE EVENT DATE: 201812
